FAERS Safety Report 25548646 (Version 1)
Quarter: 2025Q3

REPORT INFORMATION
  Report Type: Spontaneous
  Country: US (occurrence: None)
  Receive Date: 20250712
  Receipt Date: 20250712
  Transmission Date: 20251021
  Serious: Yes (Life-Threatening)
  Sender: FDA-CTU
  Company Number: None

PATIENT
  Age: 77 Year
  Sex: Female
  Weight: 89 kg

DRUGS (5)
  1. ZEPBOUND [Suspect]
     Active Substance: TIRZEPATIDE
     Indication: Type 2 diabetes mellitus
     Route: 058
     Dates: start: 20250429, end: 20250708
  2. ZEPBOUND [Suspect]
     Active Substance: TIRZEPATIDE
     Indication: Cardiac failure
  3. ZEPBOUND [Suspect]
     Active Substance: TIRZEPATIDE
     Indication: Obesity
  4. insulin U500 [Concomitant]
     Dates: start: 20240808
  5. INSULIN LISPRO [Concomitant]
     Active Substance: INSULIN LISPRO

REACTIONS (7)
  - Nausea [None]
  - Vomiting [None]
  - Orthostatic hypotension [None]
  - Syncope [None]
  - Traumatic fracture [None]
  - Craniofacial fracture [None]
  - Intraventricular haemorrhage [None]

NARRATIVE: CASE EVENT DATE: 20250708
